FAERS Safety Report 9261454 (Version 3)
Quarter: 2013Q3

REPORT INFORMATION
  Report Type: Spontaneous
  Country: JP (occurrence: JP)
  Receive Date: 20130429
  Receipt Date: 20130805
  Transmission Date: 20140515
  Serious: Yes (Hospitalization)
  Sender: FDA-Public Use
  Company Number: JP-PFIZER INC-2013132046

PATIENT
  Age: 51 Year
  Sex: Female

DRUGS (2)
  1. INLYTA [Suspect]
     Indication: RENAL CELL CARCINOMA
     Route: 048
  2. INLYTA [Suspect]
     Dosage: 6 MG, 1X/DAY

REACTIONS (1)
  - Stress cardiomyopathy [Recovered/Resolved]
